FAERS Safety Report 23713449 (Version 1)
Quarter: 2024Q2

REPORT INFORMATION
  Report Type: Spontaneous
  Country: CN (occurrence: None)
  Receive Date: 20240405
  Receipt Date: 20240405
  Transmission Date: 20240716
  Serious: Yes (Other)
  Sender: FDA-Public Use
  Company Number: 2024A080963

PATIENT
  Age: 83 Year
  Sex: Female
  Weight: 58.8 kg

DRUGS (2)
  1. PULMICORT TURBUHALER [Suspect]
     Active Substance: BUDESONIDE
     Indication: Dyspnoea
     Route: 055
     Dates: start: 20210513, end: 20210513
  2. BECLOMETHASONE DIPROPIONATE [Suspect]
     Active Substance: BECLOMETHASONE DIPROPIONATE
     Indication: Dyspnoea
     Route: 055
     Dates: start: 20210512, end: 20210513

REACTIONS (1)
  - Asphyxia [Recovered/Resolved]

NARRATIVE: CASE EVENT DATE: 20210518
